FAERS Safety Report 4586899-7 (Version None)
Quarter: 2005Q1

REPORT INFORMATION
  Report Type: 
  Country: None (occurrence: None)
  Receive Date: 20050218
  Receipt Date: 20050208
  Transmission Date: 20050727
  Serious: Yes (Hospitalization)
  Sender: FDA-Public Use
  Company Number: FR-ROCHE-395014

PATIENT
  Age: 41 Year
  Sex: Female

DRUGS (8)
  1. CELLCEPT [Suspect]
     Route: 065
  2. CELLCEPT [Suspect]
     Route: 065
     Dates: start: 20041228
  3. CELLCEPT [Suspect]
     Route: 065
     Dates: start: 20050107
  4. ROVALCYTE [Suspect]
     Route: 048
     Dates: end: 20041203
  5. BACTRIM [Suspect]
     Route: 065
  6. OMEPRAZOLE [Concomitant]
  7. NEORAL [Concomitant]
  8. CORTANCYL [Concomitant]

REACTIONS (2)
  - AGRANULOCYTOSIS [None]
  - SEPSIS [None]
